FAERS Safety Report 4987601-7 (Version None)
Quarter: 2006Q2

REPORT INFORMATION
  Report Type: 
  Country: None (occurrence: None)
  Receive Date: 20060428
  Receipt Date: 20060428
  Transmission Date: 20061013
  Serious: Yes (Other)
  Sender: FDA-Public Use
  Company Number: None

PATIENT
  Age: 41 Year
  Sex: Female
  Weight: 105.2345 kg

DRUGS (1)
  1. LEVAQUIN [Suspect]
     Indication: CHRONIC SINUSITIS
     Dosage: 500 MG ONCE DAILY PO
     Route: 048
     Dates: start: 20060418, end: 20060422

REACTIONS (18)
  - ADVERSE DRUG REACTION [None]
  - AGITATION [None]
  - ANOREXIA [None]
  - ARRHYTHMIA [None]
  - ARTHRALGIA [None]
  - ATRIAL TACHYCARDIA [None]
  - CHEST PAIN [None]
  - CONDITION AGGRAVATED [None]
  - DIZZINESS [None]
  - DYSPEPSIA [None]
  - GASTROINTESTINAL DISORDER [None]
  - INSOMNIA [None]
  - MUSCLE TWITCHING [None]
  - MYALGIA [None]
  - NAUSEA [None]
  - RESTLESSNESS [None]
  - TREMOR [None]
  - VENTRICULAR TACHYCARDIA [None]
